FAERS Safety Report 8267492-1 (Version None)
Quarter: 2012Q2

REPORT INFORMATION
  Report Type: 
  Country: None (occurrence: None)
  Receive Date: 20120409
  Receipt Date: 20120406
  Transmission Date: 20120825
  Serious: Yes (Death)
  Sender: FDA-Public Use
  Company Number: PHHY2012NL014726

PATIENT
  Sex: Male

DRUGS (7)
  1. TRAMADOL HYDROCHLORIDE [Concomitant]
  2. ASCAL [Concomitant]
  3. ZOMETA [Suspect]
     Indication: METASTASES TO BONE
     Dosage: 4MG/100ML PER 28 DAYS
  4. LASIX [Concomitant]
  5. MIDAZOLAM HCL [Concomitant]
  6. ANTIARRHYTHMICS [Concomitant]
  7. VESICARE [Concomitant]

REACTIONS (1)
  - DEATH [None]
